FAERS Safety Report 9656044 (Version 1)
Quarter: 2013Q4

REPORT INFORMATION
  Report Type: Spontaneous
  Country: US (occurrence: US)
  Receive Date: 20131030
  Receipt Date: 20131030
  Transmission Date: 20140711
  Serious: No
  Sender: FDA-Public Use
  Company Number: US-JNJFOC-20131012874

PATIENT
  Age: 29 Year
  Sex: Female

DRUGS (7)
  1. DURAGESIC [Suspect]
     Indication: FIBROMYALGIA
     Route: 062
  2. DURAGESIC [Suspect]
     Indication: FIBROMYALGIA
     Dosage: 100 UG/HR + 12.5 UG/HR
     Route: 062
  3. DURAGESIC [Suspect]
     Indication: FIBROMYALGIA
     Route: 062
  4. DURAGESIC [Suspect]
     Indication: FIBROMYALGIA
     Dosage: 75 UG/HR + 12.5 UG/HR
     Route: 062
  5. DURAGESIC [Suspect]
     Indication: FIBROMYALGIA
     Route: 062
  6. UNSPECIFIED GENERIC FENTANYL TRANDERMAL SYSTEM [Suspect]
     Indication: FIBROMYALGIA
     Route: 062
  7. UNSPECIFIED GENERIC FENTANYL TRANDERMAL SYSTEM [Suspect]
     Indication: FIBROMYALGIA
     Route: 062

REACTIONS (13)
  - Abnormal loss of weight [Not Recovered/Not Resolved]
  - Drug withdrawal syndrome [Not Recovered/Not Resolved]
  - Overdose [Not Recovered/Not Resolved]
  - Product quality issue [Unknown]
  - Appetite disorder [Not Recovered/Not Resolved]
  - Drug ineffective [Not Recovered/Not Resolved]
  - Drug administered at inappropriate site [Unknown]
  - Application site irritation [Unknown]
  - Wrong technique in drug usage process [Unknown]
  - Inappropriate schedule of drug administration [Unknown]
  - Feeling hot [Not Recovered/Not Resolved]
  - Formication [Not Recovered/Not Resolved]
  - Muscle rigidity [Not Recovered/Not Resolved]
